FAERS Safety Report 5581675-0 (Version None)
Quarter: 2008Q1

REPORT INFORMATION
  Report Type: 
  Country: None (occurrence: None)
  Receive Date: 20080104
  Receipt Date: 20071221
  Transmission Date: 20080703
  Serious: Yes (Hospitalization, Other)
  Sender: FDA-Public Use
  Company Number: US-AMGEN-QUU257304

PATIENT
  Sex: Female
  Weight: 59 kg

DRUGS (8)
  1. ENBREL [Suspect]
     Indication: RHEUMATOID ARTHRITIS
     Route: 058
     Dates: start: 20000901, end: 20070401
  2. METHOTREXATE [Concomitant]
     Route: 048
     Dates: start: 19970101, end: 20070401
  3. FOLIC ACID [Concomitant]
  4. MULTI-VITAMINS [Concomitant]
     Route: 048
  5. CALCIUM CARBONATE [Concomitant]
  6. ENABLEX [Concomitant]
     Route: 048
  7. LEXAPRO [Concomitant]
     Route: 048
  8. RISEDRONATE SODIUM [Concomitant]
     Route: 048

REACTIONS (12)
  - ARTHRALGIA [None]
  - ASTHENIA [None]
  - BREAST CANCER [None]
  - CHILLS [None]
  - DECREASED APPETITE [None]
  - DEHYDRATION [None]
  - DIZZINESS [None]
  - ENDOMETRIAL CANCER [None]
  - LETHARGY [None]
  - MYALGIA [None]
  - NAUSEA [None]
  - VOMITING [None]
